FAERS Safety Report 9751399 (Version 1)
Quarter: 2013Q4

REPORT INFORMATION
  Report Type: Spontaneous
  Country: US (occurrence: US)
  Receive Date: 20131212
  Receipt Date: 20131212
  Transmission Date: 20140711
  Serious: No
  Sender: FDA-Public Use
  Company Number: US-BIOGENIDEC-2013BI097418

PATIENT
  Age: 60 Year
  Sex: Female

DRUGS (13)
  1. TECFIDERA [Suspect]
     Indication: MULTIPLE SCLEROSIS
     Route: 048
     Dates: start: 20130911
  2. TECFIDERA [Suspect]
     Indication: MULTIPLE SCLEROSIS
     Route: 048
  3. TECFIDERA [Suspect]
     Indication: MULTIPLE SCLEROSIS
     Dates: start: 20130914
  4. ZOLOFT [Concomitant]
  5. NEURONTIN [Concomitant]
  6. RECLAST [Concomitant]
  7. CRESTOR [Concomitant]
  8. CALCIUM [Concomitant]
  9. CO Q10 [Concomitant]
  10. FISH OIL [Concomitant]
  11. VITAMIN B12 [Concomitant]
  12. VIT D [Concomitant]
  13. ASA [Concomitant]

REACTIONS (6)
  - Adverse event [Unknown]
  - Dehydration [Unknown]
  - Abdominal pain upper [Not Recovered/Not Resolved]
  - Diarrhoea [Not Recovered/Not Resolved]
  - Nausea [Unknown]
  - Vomiting [Unknown]
